FAERS Safety Report 5321928-4 (Version None)
Quarter: 2007Q2

REPORT INFORMATION
  Report Type: 
  Country: None (occurrence: None)
  Receive Date: 20070508
  Receipt Date: 20070508
  Transmission Date: 20071010
  Serious: Yes (Hospitalization)
  Sender: FDA-Public Use
  Company Number: None

PATIENT
  Sex: Female
  Weight: 88.6 kg

DRUGS (6)
  1. FLUOROURACIL [Suspect]
     Dosage: 606 MG
  2. BEVACIZUMAB (RHUMAB VEGF) [Suspect]
     Dosage: 438 MG
  3. LEUCOVORIN CALCIUM [Suspect]
  4. ELOXATIN [Suspect]
     Dosage: 131.3 MG
  5. DECADRON [Concomitant]
  6. ZOFRAN [Concomitant]

REACTIONS (2)
  - BLOOD GLUCOSE INCREASED [None]
  - SYNCOPE [None]
